FAERS Safety Report 5247951-6 (Version None)
Quarter: 2007Q1

REPORT INFORMATION
  Report Type: 
  Country: None (occurrence: None)
  Receive Date: 20070227
  Receipt Date: 20070220
  Transmission Date: 20070707
  Serious: Yes (Death)
  Sender: FDA-Public Use
  Company Number: JP-MERCK-0701USA03858

PATIENT
  Age: 70 Year
  Sex: Male

DRUGS (5)
  1. PEPCID RPD [Suspect]
     Route: 048
  2. URSO [Concomitant]
     Route: 065
  3. DIHYDROCODEINE PHOSPHATE [Concomitant]
     Route: 065
  4. STRONGER NEO-MINOPHAGEN C [Concomitant]
     Route: 065
  5. MICAFUNGIN SODIUM [Suspect]
     Route: 042
     Dates: start: 20070216, end: 20070216

REACTIONS (1)
  - PLATELET COUNT DECREASED [None]
